FAERS Safety Report 5573605-2 (Version None)
Quarter: 2007Q4

REPORT INFORMATION
  Report Type: 
  Country: None (occurrence: None)
  Receive Date: 20071226
  Receipt Date: 20071219
  Transmission Date: 20080405
  Serious: Yes (Other)
  Sender: FDA-Public Use
  Company Number: AU-AVENTIS-200721645GDDC

PATIENT
  Age: 60 Year
  Sex: Female

DRUGS (3)
  1. LANTUS [Suspect]
     Route: 058
     Dates: start: 20061201
  2. AUTOPEN INSULIN INJECTION PEN [Suspect]
  3. ACTRAPID [Concomitant]
     Route: 058

REACTIONS (2)
  - CATARACT [None]
  - STAPHYLOCOCCAL INFECTION [None]
